FAERS Safety Report 7483896-9 (Version None)
Quarter: 2011Q2

REPORT INFORMATION
  Report Type: 
  Country: None (occurrence: None)
  Receive Date: 20110517
  Receipt Date: 20110504
  Transmission Date: 20111010
  Serious: Yes (Hospitalization, Other)
  Sender: FDA-Public Use
  Company Number: IL-CELGENEUS-082-50794-11050515

PATIENT
  Age: 76 Year
  Sex: Female

DRUGS (5)
  1. ENALADEX [Concomitant]
     Indication: HYPERTENSION
     Route: 065
  2. STEROIDS [Concomitant]
     Route: 065
  3. VIDAZA [Suspect]
     Dosage: 60 MILLIGRAM
     Route: 058
     Dates: start: 20110401
  4. GLUCOPHAGE [Concomitant]
     Indication: DIABETES MELLITUS
     Route: 065
  5. VIDAZA [Suspect]
     Indication: MYELODYSPLASTIC SYNDROME
     Dosage: 75 MILLIGRAM/SQ. METER
     Route: 058
     Dates: start: 20110301

REACTIONS (4)
  - CONSTIPATION [None]
  - ANAL FISSURE [None]
  - THROMBOCYTOPENIA [None]
  - HYPOVOLAEMIC SHOCK [None]
